FAERS Safety Report 6592371-5 (Version None)
Quarter: 2010Q1

REPORT INFORMATION
  Report Type: 
  Country: None (occurrence: None)
  Receive Date: 20100221
  Receipt Date: 20091026
  Transmission Date: 20100710
  Serious: Yes (Other)
  Sender: FDA-Public Use
  Company Number: US-ALLERGAN-0913669US

PATIENT
  Age: 75 Year
  Sex: Female

DRUGS (28)
  1. BOTOX [Suspect]
     Indication: MUSCLE SPASTICITY
     Dosage: 400 UNITS, SINGLE
     Route: 030
     Dates: start: 20081210, end: 20081210
  2. BOTOX [Suspect]
     Indication: DYSTONIA
  3. ARTANE [Concomitant]
     Indication: DYSTONIA
     Dosage: 1/2-1 TAB
     Dates: start: 20080617, end: 20081216
  4. ARTANE [Concomitant]
     Dosage: 1/2-1 TAB QHS
     Dates: start: 20080417
  5. CELEBREX [Concomitant]
     Indication: MUSCULOSKELETAL STIFFNESS
     Dosage: 200 MG, QD
     Dates: start: 20080115, end: 20090116
  6. CELEBREX [Concomitant]
     Dosage: 200 MG, QAM
     Dates: start: 20070802
  7. CELEBREX [Concomitant]
     Dosage: 200 MG, QD
     Dates: start: 20080617, end: 20090116
  8. LYRICA [Concomitant]
     Dosage: 75 MG, QHS
     Dates: start: 20060118
  9. NEUPRO [Concomitant]
     Dosage: 2 MG, QD
     Dates: start: 20071115
  10. NABUMETONE [Concomitant]
  11. REQUIP [Concomitant]
     Dosage: 1 MG, QHS
     Dates: start: 20051207
  12. REQUIP [Concomitant]
     Dosage: 1 MG, 1 TAB NOON, 3 QHS
     Dates: start: 20080115, end: 20080317
  13. REQUIP [Concomitant]
     Dosage: 4 MG, BID
     Dates: start: 20060601
  14. REQUIP [Concomitant]
     Dosage: 1 MG, QHS
     Dates: start: 20070306
  15. REQUIP [Concomitant]
     Dosage: 2 MG, QHS
     Dates: start: 20051207
  16. REQUIP [Concomitant]
     Dosage: 1 TAB NOON AND 2 TABS QHS
     Dates: start: 20070306, end: 20080417
  17. REQUIP [Concomitant]
     Dosage: 2 TABS LUNCH, 2 TABS BEDTIME
     Dates: start: 20060925
  18. REQUIP [Concomitant]
     Dosage: 3 QHS, 2 NOON
     Dates: start: 20060118
  19. REQUIP [Concomitant]
     Dosage: 4 MG, QHS
     Dates: start: 20051222
  20. REQUIP [Concomitant]
     Dosage: 1 TAB NOON, 3 QHS
     Dates: start: 20080115, end: 20080227
  21. REQUIP [Concomitant]
     Dosage: 1 MG, QHS
     Dates: start: 20060925, end: 20080317
  22. REQUIP [Concomitant]
     Dosage: ONE TAB QD, 2 TABS QHS XL1 WK, THEN 2 TABS BID
     Dates: start: 20060420
  23. REQUIP [Concomitant]
     Dosage: 3 MG, BID
     Dates: start: 20060323
  24. REQUIP [Concomitant]
     Dosage: 1 MG, QHS
     Dates: start: 20080226, end: 20080317
  25. TOPAMAX [Concomitant]
     Dosage: 3 QHS X2WKS, THEN 2 QHS X2WKS, THEN 3 QHS
     Dates: start: 20050914
  26. TOPAMAX [Concomitant]
     Dosage: 50 MG, QHS
     Dates: start: 20050525, end: 20080317
  27. TOPAMAX [Concomitant]
     Dosage: 200 MG, QHS
     Dates: start: 20050712
  28. TOPAMAX [Concomitant]
     Dosage: 100 MG, QHS
     Dates: start: 20050627

REACTIONS (1)
  - MUSCULAR WEAKNESS [None]
